FAERS Safety Report 15334894 (Version 1)
Quarter: 2018Q3

REPORT INFORMATION
  Report Type: Spontaneous
  Country: US (occurrence: US)
  Receive Date: 20180830
  Receipt Date: 20180830
  Transmission Date: 20181010
  Serious: No
  Sender: FDA-Public Use
  Company Number: US-BAYER-2018-157792

PATIENT

DRUGS (1)
  1. GADAVIST [Suspect]
     Active Substance: GADOBUTROL
     Indication: NUCLEAR MAGNETIC RESONANCE IMAGING
     Dosage: UNK, ONCE
     Dates: start: 20180815, end: 20180815

REACTIONS (10)
  - Headache [None]
  - Flank pain [None]
  - Vision blurred [None]
  - Arthralgia [None]
  - Nausea [None]
  - Dizziness [None]
  - Heart rate increased [None]
  - Heart rate irregular [None]
  - Tremor [None]
  - Pain in extremity [None]

NARRATIVE: CASE EVENT DATE: 201808
